FAERS Safety Report 8481134-1 (Version None)
Quarter: 2012Q3

REPORT INFORMATION
  Report Type: 
  Country: None (occurrence: None)
  Receive Date: 20120702
  Receipt Date: 20120626
  Transmission Date: 20120928
  Serious: Yes (Other)
  Sender: FDA-Public Use
  Company Number: PHEH2012US012881

PATIENT
  Sex: Male

DRUGS (4)
  1. REVLIMID [Suspect]
     Dosage: 25 MG DAILY
     Route: 048
     Dates: start: 20120104
  2. DEXAMETHASONE [Suspect]
  3. REVLIMID [Suspect]
     Indication: MULTIPLE MYELOMA
     Dosage: 25 MG DAILY
     Route: 048
  4. ZOMETA [Suspect]

REACTIONS (8)
  - SPINAL PAIN [None]
  - PAIN [None]
  - ABDOMINAL PAIN [None]
  - BONE PAIN [None]
  - PAIN IN EXTREMITY [None]
  - AKINESIA [None]
  - CONSTIPATION [None]
  - BACK PAIN [None]
